FAERS Safety Report 10053226 (Version 1)
Quarter: 2014Q2

REPORT INFORMATION
  Report Type: Spontaneous
  Country: US (occurrence: US)
  Receive Date: 20140402
  Receipt Date: 20140402
  Transmission Date: 20141212
  Serious: No
  Sender: FDA-Public Use
  Company Number: US-TEVA-472230USA

PATIENT
  Age: 75 Year
  Sex: Male

DRUGS (1)
  1. QNASL [Suspect]

REACTIONS (2)
  - Headache [Unknown]
  - Feeling abnormal [Unknown]
